FAERS Safety Report 25901544 (Version 1)
Quarter: 2025Q4

REPORT INFORMATION
  Report Type: Report from Study
  Country: CA (occurrence: CA)
  Receive Date: 20251009
  Receipt Date: 20251009
  Transmission Date: 20260117
  Serious: Yes (Other)
  Sender: UCB
  Company Number: CA-UCBSA-2025010103

PATIENT
  Sex: Female

DRUGS (5)
  1. BIMEKIZUMAB [Suspect]
     Active Substance: BIMEKIZUMAB
     Indication: Ankylosing spondylitis
     Dosage: 160 MILLIGRAM, EV 4 WEEKS
     Route: 058
     Dates: start: 20241214
  2. PREDNISONE [Concomitant]
     Active Substance: PREDNISONE
     Indication: Product used for unknown indication
  3. ATIVAN [Concomitant]
     Active Substance: LORAZEPAM
     Indication: Product used for unknown indication
  4. KADIAN [Concomitant]
     Active Substance: MORPHINE SULFATE
     Indication: Product used for unknown indication
  5. FLORINEF ACETATE [Concomitant]
     Active Substance: FLUDROCORTISONE ACETATE
     Indication: Product used for unknown indication

REACTIONS (11)
  - Cervical spinal stenosis [Unknown]
  - Spinal operation [Unknown]
  - Haematoma [Unknown]
  - Nausea [Unknown]
  - Vomiting [Unknown]
  - Psychomotor retardation [Unknown]
  - Toxicity to various agents [Unknown]
  - Neck pain [Unknown]
  - General physical health deterioration [Unknown]
  - Intentional dose omission [Unknown]
  - Loss of personal independence in daily activities [Unknown]

NARRATIVE: CASE EVENT DATE: 20250101
